FAERS Safety Report 11835224 (Version 4)
Quarter: 2016Q1

REPORT INFORMATION
  Report Type: Spontaneous
  Country: US (occurrence: US)
  Receive Date: 20151215
  Receipt Date: 20160126
  Transmission Date: 20160525
  Serious: Yes (Death, Hospitalization, Other)
  Sender: FDA-Public Use
  Company Number: US-009507513-1512USA006800

PATIENT
  Age: 68 Year
  Sex: Female

DRUGS (3)
  1. FOSAMAX [Suspect]
     Active Substance: ALENDRONATE SODIUM
     Indication: OSTEOPOROSIS PROPHYLAXIS
     Dosage: UNK UNK, UNKNOWN
     Route: 048
     Dates: start: 1991
  2. FOSAMAX [Suspect]
     Active Substance: ALENDRONATE SODIUM
     Dosage: 70 MG, QW
     Route: 048
     Dates: start: 20031229, end: 2008
  3. FOSAMAX PLUS D [Suspect]
     Active Substance: ALENDRONATE SODIUM\CHOLECALCIFEROL
     Indication: OSTEOPENIA
     Dosage: 70 MG 2800 IU, QW
     Route: 048

REACTIONS (24)
  - Atrial fibrillation [Unknown]
  - Pharyngeal polyp [Unknown]
  - Leukocytosis [Unknown]
  - Tachycardia [Recovered/Resolved]
  - Arthropathy [Unknown]
  - Pain in extremity [Unknown]
  - Breast mass [Unknown]
  - Osteomyelitis [Unknown]
  - Pulmonary mass [Unknown]
  - Osteonecrosis of jaw [Fatal]
  - Cardiac failure [Unknown]
  - Hypertension [Unknown]
  - Obesity [Unknown]
  - Hypothyroidism [Unknown]
  - Back pain [Unknown]
  - Cellulitis [Unknown]
  - Chronic obstructive pulmonary disease [Unknown]
  - Osteoarthritis [Unknown]
  - Osteoarthritis [Unknown]
  - Mass [Unknown]
  - Hip arthroplasty [Unknown]
  - Atelectasis [Unknown]
  - Anxiety [Unknown]
  - Cardiac disorder [Unknown]

NARRATIVE: CASE EVENT DATE: 2013
